FAERS Safety Report 19766927 (Version 1)
Quarter: 2021Q3

REPORT INFORMATION
  Report Type: Spontaneous
  Country: US (occurrence: US)
  Receive Date: 20210830
  Receipt Date: 20210830
  Transmission Date: 20211014
  Serious: No
  Sender: FDA-Public Use
  Company Number: None

PATIENT
  Age: 28 Year
  Sex: Female
  Weight: 104 kg

DRUGS (4)
  1. DEXTROSE 5% 500ML [Concomitant]
     Dates: start: 20210830, end: 20210830
  2. NORMAL SALINE FLUSH [Concomitant]
     Active Substance: SODIUM CHLORIDE
     Dates: start: 20210830, end: 20210830
  3. GAMMAGARD 20G [Concomitant]
     Dates: start: 20210830, end: 20210830
  4. DIPHENHYDRAMINE. [Suspect]
     Active Substance: DIPHENHYDRAMINE
     Indication: MYASTHENIA GRAVIS
     Dosage: ?          OTHER FREQUENCY:MID?INFUSION;?
     Route: 042
     Dates: start: 20210830, end: 20210830

REACTIONS (2)
  - Rash macular [None]
  - Infusion site erythema [None]

NARRATIVE: CASE EVENT DATE: 20210830
